FAERS Safety Report 5083639-2 (Version None)
Quarter: 2006Q3

REPORT INFORMATION
  Report Type: 
  Country: None (occurrence: None)
  Receive Date: 20060816
  Receipt Date: 20060628
  Transmission Date: 20061208
  Serious: Yes (Hospitalization)
  Sender: FDA-Public Use
  Company Number: F03200600155

PATIENT
  Age: 78 Year
  Sex: Male

DRUGS (13)
  1. OXALIPLATIN - SOLUTION - 85 MG/M2 [Suspect]
     Indication: COLON CANCER
     Dosage: 85 MG/M2 QW2 INTRAVENOUS NOS
     Route: 042
     Dates: start: 20060509, end: 20060509
  2. CETUXIMAB - SOLUTION UNIT DOSE : UNKNOWN [Suspect]
     Indication: COLON CANCER
     Dosage: 400MG/M2 ON DAY 1 AND 250MG/M2 ON DAY 8 - INTRAVENOUS NOS
     Route: 042
     Dates: start: 20060117, end: 20060117
  3. FLUOROURACIL [Suspect]
     Indication: COLON CANCER
     Dosage: 400 MG/M2 IV PUSH ON DAY 1 FOLLOWED BY 2400 MG/M2 CONTINUOUS IV OVER 46-48 HOURS EVERY 2 WEEKS - INT
     Route: 042
     Dates: start: 20060509, end: 20060510
  4. LEUCOVORIN CALCIUM [Suspect]
     Indication: COLON CANCER
     Dosage: 400 MG/M2 Q2W INTRAVENOUS NOS
     Route: 042
     Dates: start: 20060509, end: 20060509
  5. ATENOLOL [Concomitant]
  6. SIMVASTATIN [Concomitant]
  7. OMEPRAZOLE [Concomitant]
  8. LOPERAMIDE HYDROCHLORIDE [Concomitant]
  9. FENTANYL [Concomitant]
  10. FINASTERIDE [Concomitant]
  11. WARFARIN SODIUM [Concomitant]
  12. METOCLOPRAMIDE [Concomitant]
  13. BOOST [Concomitant]

REACTIONS (4)
  - CHOLECYSTITIS [None]
  - DIARRHOEA [None]
  - GALLBLADDER PAIN [None]
  - LUNG INFILTRATION [None]
